FAERS Safety Report 21020691 (Version 3)
Quarter: 2022Q3

REPORT INFORMATION
  Report Type: Spontaneous
  Country: US (occurrence: US)
  Receive Date: 20220629
  Receipt Date: 20220822
  Transmission Date: 20221027
  Serious: Yes (Death, Life-Threatening, Hospitalization, Other)
  Sender: FDA-Public Use
  Company Number: US-JNJFOC-20220644142

PATIENT
  Age: 34 Year
  Sex: Female
  Weight: 48.8 kg

DRUGS (8)
  1. BENADRYL [Suspect]
     Active Substance: DIPHENHYDRAMINE HYDROCHLORIDE
     Indication: Pruritus
     Dosage: PRN
     Route: 042
     Dates: start: 20210314, end: 20210329
  2. OXYCODONE [Suspect]
     Active Substance: OXYCODONE
     Indication: Pain
     Route: 042
  3. HYDROMORPHONE [Suspect]
     Active Substance: HYDROMORPHONE
     Indication: Drug use disorder
     Route: 048
  4. HYDROMORPHONE [Suspect]
     Active Substance: HYDROMORPHONE
     Route: 042
  5. DIAZEPAM [Concomitant]
     Active Substance: DIAZEPAM
     Indication: Anxiety
     Dosage: AT NIGHT
     Route: 065
  6. DOXYCYCLINE [Concomitant]
     Active Substance: DOXYCYCLINE
     Indication: Infection
     Route: 065
  7. FLUCONAZOLE [Concomitant]
     Active Substance: FLUCONAZOLE
     Indication: Infection
     Route: 065
  8. ACETAMINOPHEN [Concomitant]
     Active Substance: ACETAMINOPHEN
     Indication: Pain
     Route: 065

REACTIONS (16)
  - Secondary amyloidosis [Fatal]
  - Pulseless electrical activity [Fatal]
  - Myelosuppression [Fatal]
  - Immune system disorder [Fatal]
  - Hypothyroidism [Fatal]
  - Drug abuse [Fatal]
  - Staphylococcal infection [Fatal]
  - Bone marrow failure [Fatal]
  - Granuloma [Fatal]
  - Lung disorder [Fatal]
  - Sepsis [Fatal]
  - Electrolyte imbalance [Fatal]
  - Myocarditis [Fatal]
  - Cardiac failure [Fatal]
  - Acute kidney injury [Fatal]
  - Fungaemia [Fatal]
